FAERS Safety Report 6034043-1 (Version None)
Quarter: 2009Q1

REPORT INFORMATION
  Report Type: 
  Country: None (occurrence: None)
  Receive Date: 20090108
  Receipt Date: 20090108
  Transmission Date: 20090719
  Serious: Yes (Hospitalization)
  Sender: FDA-Public Use
  Company Number: None

PATIENT
  Age: 66 Year
  Sex: Female
  Weight: 56.4 kg

DRUGS (2)
  1. OXALIPLATIN [Suspect]
     Indication: COLON CANCER
     Dosage: 85 MG/M2 Q 14 DAYS IV
     Route: 042
     Dates: end: 20081204
  2. BEVACIZUMAB [Suspect]
     Dosage: 5 MG/KG Q 14 DAYS IV
     Route: 042
     Dates: end: 20081204

REACTIONS (2)
  - DEEP VEIN THROMBOSIS [None]
  - EMBOLISM [None]
